FAERS Safety Report 6679779-4 (Version None)
Quarter: 2010Q2

REPORT INFORMATION
  Report Type: 
  Country: None (occurrence: None)
  Receive Date: 20100413
  Receipt Date: 20090708
  Transmission Date: 20101027
  Serious: No
  Sender: FDA-Public Use
  Company Number: US-ASTRAZENECA-2009UW08325

PATIENT
  Sex: Female

DRUGS (3)
  1. ATENOLOL [Suspect]
     Route: 048
     Dates: start: 19840101
  2. COZAAR [Concomitant]
  3. MAXZIDE [Concomitant]

REACTIONS (6)
  - BLOOD PRESSURE INCREASED [None]
  - CARPAL TUNNEL SYNDROME [None]
  - ELECTROLYTE IMBALANCE [None]
  - HEART RATE DECREASED [None]
  - RHEUMATOID ARTHRITIS [None]
  - SPINAL CORD DISORDER [None]
